FAERS Safety Report 9455242 (Version 1)
Quarter: 2013Q3

REPORT INFORMATION
  Report Type: Other
  Country: IT (occurrence: IT)
  Receive Date: 20130813
  Receipt Date: 20130813
  Transmission Date: 20140515
  Serious: Yes (Hospitalization)
  Sender: FDA-Public Use
  Company Number: IT-SUN PHARMACEUTICAL INDUSTRIES LTD-2013SUN04489

PATIENT
  Sex: 0

DRUGS (4)
  1. OXALIPLATIN [Suspect]
     Indication: COLON CANCER METASTATIC
     Dosage: 90 MG, CYCLICAL
     Route: 042
     Dates: start: 20130509, end: 20130509
  2. XELODA [Concomitant]
     Dosage: UNK
     Dates: start: 20130509, end: 20130520
  3. DELAPRIDE [Concomitant]
  4. IPERTEN [Concomitant]

REACTIONS (2)
  - Respiratory failure [Recovered/Resolved]
  - Paraesthesia [Recovered/Resolved]
